FAERS Safety Report 14638250 (Version 1)
Quarter: 2018Q1

REPORT INFORMATION
  Report Type: Spontaneous
  Country: US (occurrence: US)
  Receive Date: 20180314
  Receipt Date: 20180314
  Transmission Date: 20180509
  Serious: No
  Sender: FDA-Public Use
  Company Number: None

PATIENT

DRUGS (2)
  1. GABAPENTIN 100 MG 2 TIMES A DAY [Suspect]
     Active Substance: GABAPENTIN
  2. GABAPENTIN 600 MG 1 AT NIGHT [Suspect]
     Active Substance: GABAPENTIN

REACTIONS (2)
  - Lethargy [None]
  - Feeling abnormal [None]
